FAERS Safety Report 5284158-0 (Version None)
Quarter: 2007Q1

REPORT INFORMATION
  Report Type: 
  Country: None (occurrence: None)
  Receive Date: 20070328
  Receipt Date: 20040113
  Transmission Date: 20070707
  Serious: Yes (Death)
  Sender: FDA-Public Use
  Company Number: GXBR2004US00570

PATIENT
  Age: 19 Year
  Sex: Female

DRUGS (1)
  1. FLUOXETINE [Suspect]
     Dosage: SEE IMAGE
     Dates: start: 20020109

REACTIONS (2)
  - COMPLETED SUICIDE [None]
  - GUN SHOT WOUND [None]
